FAERS Safety Report 6526054-4 (Version None)
Quarter: 2009Q4

REPORT INFORMATION
  Report Type: 
  Country: None (occurrence: None)
  Receive Date: 20091224
  Receipt Date: 20091217
  Transmission Date: 20100525
  Serious: Yes (Death)
  Sender: FDA-Public Use
  Company Number: 2009003890

PATIENT
  Age: 54 Year
  Sex: Male

DRUGS (1)
  1. TARCEVA [Suspect]
     Indication: NON-SMALL CELL LUNG CANCER
     Dosage: (150 MG, QD), ORAL
     Route: 048
     Dates: start: 20080701, end: 20090801

REACTIONS (6)
  - BONE LESION [None]
  - BONE PAIN [None]
  - DIARRHOEA [None]
  - FATIGUE [None]
  - GROWTH OF EYELASHES [None]
  - HEPATOMEGALY [None]
